FAERS Safety Report 8921689 (Version 2)
Quarter: 2012Q4

REPORT INFORMATION
  Report Type: Report from Study
  Country: US (occurrence: US)
  Receive Date: 20121121
  Receipt Date: 20121127
  Transmission Date: 20130627
  Serious: Yes (Hospitalization)
  Sender: FDA-Public Use
  Company Number: US-JNJFOC-20121109698

PATIENT
  Age: 16 Year
  Sex: Male
  Weight: 47.4 kg

DRUGS (2)
  1. REMICADE [Suspect]
     Indication: INFLAMMATORY BOWEL DISEASE
     Route: 042
     Dates: start: 20090819
  2. HUMIRA [Concomitant]
     Dates: start: 20110324

REACTIONS (1)
  - Pancreatitis [Recovered/Resolved]
